FAERS Safety Report 18800508 (Version 3)
Quarter: 2021Q1

REPORT INFORMATION
  Report Type: Spontaneous
  Country: US (occurrence: US)
  Receive Date: 20210128
  Receipt Date: 20210322
  Transmission Date: 20210419
  Serious: Yes (Other)
  Sender: FDA-Public Use
  Company Number: US-SA-2021SA026530

PATIENT
  Sex: Female

DRUGS (1)
  1. AUBAGIO [Suspect]
     Active Substance: TERIFLUNOMIDE
     Indication: MULTIPLE SCLEROSIS
     Dosage: 14 MG, QD
     Route: 048
     Dates: start: 20200919

REACTIONS (6)
  - Gastrointestinal disorder [Unknown]
  - Mycobacterium avium complex infection [Unknown]
  - B-lymphocyte count decreased [Unknown]
  - Alopecia [Not Recovered/Not Resolved]
  - Pneumonitis [Unknown]
  - Nocardiosis [Unknown]
